FAERS Safety Report 13005296 (Version 1)
Quarter: 2016Q4

REPORT INFORMATION
  Report Type: Spontaneous
  Country: US (occurrence: US)
  Receive Date: 20161207
  Receipt Date: 20161207
  Transmission Date: 20170207
  Serious: No
  Sender: FDA-Public Use
  Company Number: US-TEVA-691246USA

PATIENT
  Age: 33 Year
  Sex: Female
  Weight: 75.74 kg

DRUGS (1)
  1. GUAIFENESIN W/ DEXTROMETHORPHAN [Suspect]
     Active Substance: DEXTROMETHORPHAN\GUAIFENESIN
     Indication: PULMONARY CONGESTION
     Dosage: 2400 MILLIGRAM DAILY;
     Route: 048
     Dates: start: 20160825, end: 20160826

REACTIONS (1)
  - Dizziness [Recovered/Resolved]

NARRATIVE: CASE EVENT DATE: 20160826
